FAERS Safety Report 4538421-9 (Version None)
Quarter: 2004Q4

REPORT INFORMATION
  Report Type: 
  Country: None (occurrence: None)
  Receive Date: 20041223
  Receipt Date: 20041223
  Transmission Date: 20050328
  Serious: Yes (Other)
  Sender: FDA-Public Use
  Company Number: None

PATIENT
  Age: 66 Year
  Sex: Male
  Weight: 80.7403 kg

DRUGS (7)
  1. REMICADE [Suspect]
     Indication: RHEUMATOID ARTHRITIS
     Dosage: 243 MG IV
     Route: 042
     Dates: start: 20040318
  2. REMICADE [Suspect]
     Indication: RHEUMATOID ARTHRITIS
     Dosage: 243 MG IV
     Route: 042
     Dates: start: 20040402
  3. REMICADE [Suspect]
     Indication: RHEUMATOID ARTHRITIS
     Dosage: 243 MG IV
     Route: 042
     Dates: start: 20040503
  4. TOPROL-XL [Concomitant]
  5. LODINE [Concomitant]
  6. ETODOLAC [Concomitant]
  7. CALCIUM GLUCONATE [Concomitant]

REACTIONS (6)
  - CHILLS [None]
  - INFECTION [None]
  - NIGHT SWEATS [None]
  - PHARYNGOLARYNGEAL PAIN [None]
  - PYREXIA [None]
  - SINUSITIS [None]
